FAERS Safety Report 14613441 (Version 1)
Quarter: 2018Q1

REPORT INFORMATION
  Report Type: Spontaneous
  Country: IT (occurrence: IT)
  Receive Date: 20180308
  Receipt Date: 20180308
  Transmission Date: 20180509
  Serious: Yes (Other)
  Sender: FDA-Public Use
  Company Number: IT-TEVA-2018-IT-863393

PATIENT
  Age: 18 Year
  Sex: Male

DRUGS (2)
  1. CLOZAPINE. [Suspect]
     Active Substance: CLOZAPINE
     Indication: MANIA
     Route: 048
     Dates: start: 20171101, end: 20171124
  2. TAVOR 2 MG/ ML GOCCE ORALI, SOLUZIONE [Concomitant]
     Indication: ANXIETY

REACTIONS (4)
  - Pyrexia [Recovered/Resolved]
  - Pericarditis [Recovered/Resolved]
  - Diarrhoea [Recovered/Resolved]
  - Leukocytosis [Recovered/Resolved]

NARRATIVE: CASE EVENT DATE: 20171110
